FAERS Safety Report 4520695-1 (Version None)
Quarter: 2004Q4

REPORT INFORMATION
  Report Type: 
  Country: None (occurrence: None)
  Receive Date: 20041207
  Receipt Date: 20041001
  Transmission Date: 20050328
  Serious: Yes (Life-Threatening, Hospitalization)
  Sender: FDA-Public Use
  Company Number: US-MERCK-0410USA00250

PATIENT
  Age: 87 Year
  Sex: Male

DRUGS (2)
  1. VIOXX [Suspect]
     Indication: PAIN
     Route: 048
     Dates: end: 20040401
  2. HYTRIN [Concomitant]
     Route: 065

REACTIONS (2)
  - HEART RATE INCREASED [None]
  - HYPERTENSION [None]
